FAERS Safety Report 7306579-4 (Version None)
Quarter: 2011Q1

REPORT INFORMATION
  Report Type: 
  Country: None (occurrence: None)
  Receive Date: 20110209
  Receipt Date: 20110124
  Transmission Date: 20110831
  Serious: Yes (Hospitalization)
  Sender: FDA-Public Use
  Company Number: 2011-0251

PATIENT
  Age: 66 Year
  Sex: Male

DRUGS (1)
  1. APO-GO PFS  (APOMORPHINE HYDROCHLORIDE) [Suspect]
     Indication: PRODUCT USED FOR UNKNOWN INDICATION
     Dosage: FOR 15 HOURS/ DAY AT RATE 0.70ML/H PLUS BOLUS 0.81 ML (BETWEEN 7AM AND 10PM), SUBCUTANEOUS
     Route: 058
     Dates: start: 20081016

REACTIONS (1)
  - EYE MOVEMENT DISORDER [None]
